FAERS Safety Report 5198990-5 (Version None)
Quarter: 2007Q1

REPORT INFORMATION
  Report Type: 
  Country: None (occurrence: None)
  Receive Date: 20070104
  Receipt Date: 20061228
  Transmission Date: 20070707
  Serious: Yes (Other)
  Sender: FDA-Public Use
  Company Number: DE-AMGEN-UK204928

PATIENT
  Sex: Male

DRUGS (1)
  1. NEUPOGEN [Suspect]
     Indication: PRE-EXISTING DISEASE
     Route: 065
     Dates: start: 20061204, end: 20061205

REACTIONS (6)
  - ACUTE MYELOID LEUKAEMIA [None]
  - ARRHYTHMIA [None]
  - BONE PAIN [None]
  - CHEST PAIN [None]
  - MUSCLE CONTRACTIONS INVOLUNTARY [None]
  - RESPIRATORY DISTRESS [None]
